FAERS Safety Report 20658223 (Version 2)
Quarter: 2022Q4

REPORT INFORMATION
  Report Type: Spontaneous
  Country: US (occurrence: US)
  Receive Date: 20220331
  Receipt Date: 20221130
  Transmission Date: 20230113
  Serious: No
  Sender: FDA-Public Use
  Company Number: US-LUPIN PHARMACEUTICALS INC.-2022-04402

PATIENT
  Sex: Female

DRUGS (2)
  1. ALBUTEROL SULFATE [Suspect]
     Active Substance: ALBUTEROL SULFATE
     Indication: Product used for unknown indication
     Dosage: 1 PUFFS 6 TIMES DAILY ON AS NEEDED BASIS
     Dates: start: 20220214
  2. ALBUTEROL SULFATE [Suspect]
     Active Substance: ALBUTEROL SULFATE
     Dosage: 1 PUFFS 6 TIMES DAILY ON AS NEEDED BASIS
     Dates: start: 20220214

REACTIONS (2)
  - Device delivery system issue [Unknown]
  - Device ineffective [Unknown]

NARRATIVE: CASE EVENT DATE: 20220101
